FAERS Safety Report 8375982-6 (Version None)
Quarter: 2012Q2

REPORT INFORMATION
  Report Type: 
  Country: None (occurrence: None)
  Receive Date: 20120522
  Receipt Date: 20120514
  Transmission Date: 20120825
  Serious: Yes (Hospitalization)
  Sender: FDA-Public Use
  Company Number: US-ASTRAZENECA-2011SE68489

PATIENT
  Age: 53 Year
  Sex: Female
  Weight: 77.1 kg

DRUGS (4)
  1. SEROQUEL [Suspect]
     Route: 048
  2. LITHIUM CARBONATE [Concomitant]
     Indication: BIPOLAR DISORDER
  3. METFORMIN HCL [Concomitant]
  4. SEROQUEL [Suspect]
     Indication: BIPOLAR DISORDER
     Route: 048
     Dates: start: 20080101

REACTIONS (9)
  - DIABETES MELLITUS [None]
  - BLOOD GLUCOSE INCREASED [None]
  - MENTAL DISORDER [None]
  - MALAISE [None]
  - BLINDNESS [None]
  - TREMOR [None]
  - THIRST [None]
  - WEIGHT DECREASED [None]
  - INTENTIONAL DRUG MISUSE [None]
